FAERS Safety Report 17864621 (Version 1)
Quarter: 2020Q2

REPORT INFORMATION
  Report Type: Spontaneous
  Country: US (occurrence: US)
  Receive Date: 20200604
  Receipt Date: 20200604
  Transmission Date: 20200714
  Serious: Yes (Hospitalization)
  Sender: FDA-Public Use
  Company Number: None

PATIENT
  Sex: Male

DRUGS (29)
  1. ERLEADA [Suspect]
     Active Substance: APALUTAMIDE
     Indication: PROSTATE CANCER
     Route: 048
     Dates: start: 202003
  2. LACTULOSE. [Concomitant]
     Active Substance: LACTULOSE
  3. LUPRON DEPOT [Suspect]
     Active Substance: LEUPROLIDE ACETATE
     Indication: PROSTATE CANCER
     Dosage: ?          OTHER FREQUENCY:EVERY 6 MONTH;?
     Route: 030
     Dates: end: 202003
  4. OXYCODONE [Concomitant]
     Active Substance: OXYCODONE
  5. POLYETH GLYC [Concomitant]
     Active Substance: POLYETHYLENE GLYCOLS
  6. LEVOTHYROXIN [Concomitant]
     Active Substance: LEVOTHYROXINE
  7. ABIRATERONE ACETATE. [Concomitant]
     Active Substance: ABIRATERONE ACETATE
  8. AMOXICILLIN. [Concomitant]
     Active Substance: AMOXICILLIN
  9. DOXYCYCL HYC [Concomitant]
  10. ESOMEPRA MAGNESIUM [Concomitant]
  11. HYDROCHLOROT [Concomitant]
     Active Substance: HYDROCHLOROTHIAZIDE
  12. SYNTHROID [Concomitant]
     Active Substance: LEVOTHYROXINE SODIUM
  13. DEXAMETHASON [Concomitant]
     Active Substance: DEXAMETHASONE
  14. POT CL [Concomitant]
  15. PREDNISONE. [Concomitant]
     Active Substance: PREDNISONE
  16. TRAMADOL. [Concomitant]
     Active Substance: TRAMADOL
  17. AMOX/K CLAV [Concomitant]
     Active Substance: AMOXICILLIN\CLAVULANATE POTASSIUM
  18. AZELASTINE. [Concomitant]
     Active Substance: AZELASTINE HYDROCHLORIDE
  19. BACLOFEN. [Concomitant]
     Active Substance: BACLOFEN
  20. OXYBUTYNIN. [Concomitant]
     Active Substance: OXYBUTYNIN CHLORIDE
  21. OXYCODONE AND ACETAMINOPHEN [Concomitant]
     Active Substance: ACETAMINOPHEN\OXYCODONE HYDROCHLORIDE
  22. TAMSULOSIN [Concomitant]
     Active Substance: TAMSULOSIN
  23. BENZONATATE. [Concomitant]
     Active Substance: BENZONATATE
  24. KETOROLAC [Concomitant]
     Active Substance: KETOROLAC TROMETHAMINE
  25. NYSTATIN. [Concomitant]
     Active Substance: NYSTATIN
  26. SOTALOL HCL [Concomitant]
     Active Substance: SOTALOL
  27. AZITHROMYCIN ANHYDROUS. [Concomitant]
     Active Substance: AZITHROMYCIN ANHYDROUS
  28. FLUCONAZOLE. [Concomitant]
     Active Substance: FLUCONAZOLE
  29. VENTOLIN HFA AER [Concomitant]

REACTIONS (3)
  - Pneumonia [None]
  - Hyperhidrosis [None]
  - Asthenia [None]
